FAERS Safety Report 11683951 (Version 1)
Quarter: 2015Q4

REPORT INFORMATION
  Report Type: Spontaneous
  Country: MX (occurrence: MX)
  Receive Date: 20151029
  Receipt Date: 20151029
  Transmission Date: 20160304
  Serious: Yes (Other)
  Sender: FDA-Public Use
  Company Number: MX-APOTEX-2015AP013964

PATIENT

DRUGS (1)
  1. PAXIL [Suspect]
     Active Substance: PAROXETINE HYDROCHLORIDE
     Indication: EPILEPSY
     Dosage: 0.5 DF, QD
     Route: 065

REACTIONS (3)
  - Wrong technique in product usage process [Not Recovered/Not Resolved]
  - Humerus fracture [Unknown]
  - Off label use [Not Recovered/Not Resolved]
